FAERS Safety Report 22643353 (Version 1)
Quarter: 2023Q2

REPORT INFORMATION
  Report Type: Other
  Country: FR (occurrence: FR)
  Receive Date: 20230627
  Receipt Date: 20230627
  Transmission Date: 20230721
  Serious: Yes (Hospitalization)
  Sender: FDA-Public Use
  Company Number: None

PATIENT

DRUGS (3)
  1. VENLAFAXINE [Suspect]
     Active Substance: VENLAFAXINE HYDROCHLORIDE
     Indication: Anxiety disorder
     Dosage: 37.5 MILLIGRAM, QD
     Route: 048
     Dates: start: 20180903, end: 20220501
  2. XANAX [Suspect]
     Active Substance: ALPRAZOLAM
     Indication: Anxiety disorder
     Dosage: 0.25 MILLIGRAM, QD
     Route: 048
     Dates: start: 2016
  3. COMIRNATY [Suspect]
     Active Substance: TOZINAMERAN
     Indication: COVID-19 immunisation
     Dosage: 1 DOSAGE FORM, 1 TOTAL
     Route: 030
     Dates: start: 20211216, end: 20211216

REACTIONS (1)
  - Autoimmune hepatitis [Not Recovered/Not Resolved]

NARRATIVE: CASE EVENT DATE: 20220215
